FAERS Safety Report 12047698 (Version 2)
Quarter: 2016Q2

REPORT INFORMATION
  Report Type: Spontaneous
  Country: US (occurrence: US)
  Receive Date: 20160209
  Receipt Date: 20160623
  Transmission Date: 20160815
  Serious: Yes (Hospitalization, Other)
  Sender: FDA-Public Use
  Company Number: US-TEVA-632144USA

PATIENT
  Age: 76 Year
  Sex: Male

DRUGS (11)
  1. CLORAZEPAM [Concomitant]
     Active Substance: CLONAZEPAM
  2. ASA [Concomitant]
     Active Substance: ASPIRIN
  3. LABETALOL [Concomitant]
     Active Substance: LABETALOL\LABETALOL HYDROCHLORIDE
  4. CITALOPRAM [Concomitant]
     Active Substance: CITALOPRAM HYDROBROMIDE
  5. SINEMET [Concomitant]
     Active Substance: CARBIDOPA\LEVODOPA
     Dosage: 25-100MILLIGRAM
  6. VITAMIN B12 [Concomitant]
     Active Substance: CYANOCOBALAMIN
  7. RASAGILINE [Concomitant]
     Active Substance: RASAGILINE
  8. AZILECT [Suspect]
     Active Substance: RASAGILINE MESYLATE
  9. TYLENOL WITH CODEINE [Concomitant]
     Active Substance: ACETAMINOPHEN\CODEINE PHOSPHATE
  10. CLONIDINE. [Concomitant]
     Active Substance: CLONIDINE
  11. LEVOTHYROXINE. [Concomitant]
     Active Substance: LEVOTHYROXINE

REACTIONS (3)
  - Fall [Recovered/Resolved]
  - Knee arthroplasty [Recovered/Resolved]
  - Spinal fracture [Recovered/Resolved with Sequelae]

NARRATIVE: CASE EVENT DATE: 20151102
